FAERS Safety Report 4362200-9 (Version None)
Quarter: 2004Q2

REPORT INFORMATION
  Report Type: 
  Country: None (occurrence: None)
  Receive Date: 20040521
  Receipt Date: 20040511
  Transmission Date: 20050107
  Serious: Yes (Hospitalization)
  Sender: FDA-Public Use
  Company Number: 200411917FR

PATIENT
  Age: 53 Year
  Sex: Female
  Weight: 55 kg

DRUGS (8)
  1. RIFADIN [Suspect]
     Indication: PULMONARY TUBERCULOSIS
     Route: 048
     Dates: start: 20040205, end: 20040421
  2. RIFADIN [Suspect]
     Indication: SPONDYLITIS
     Route: 048
     Dates: start: 20040205, end: 20040421
  3. RIMIFON [Suspect]
     Indication: PULMONARY TUBERCULOSIS
     Route: 048
     Dates: start: 20040205, end: 20040415
  4. RIMIFON [Suspect]
     Indication: SPONDYLITIS
     Route: 048
     Dates: start: 20040205, end: 20040415
  5. PIRILENE [Concomitant]
     Indication: PULMONARY TUBERCULOSIS
     Route: 048
     Dates: start: 20040205, end: 20040329
  6. PIRILENE [Concomitant]
     Indication: SPONDYLITIS
     Route: 048
     Dates: start: 20040205, end: 20040329
  7. MYAMBUTOL [Concomitant]
     Indication: PULMONARY TUBERCULOSIS
     Dates: start: 20040205, end: 20040329
  8. MYAMBUTOL [Concomitant]
     Indication: SPONDYLITIS
     Dates: start: 20040205, end: 20040329

REACTIONS (8)
  - COLITIS [None]
  - GALLBLADDER DISORDER [None]
  - GASTRITIS [None]
  - MICROLITHIASIS [None]
  - PANCREATITIS [None]
  - PARASITE STOOL TEST POSITIVE [None]
  - SPLENOMEGALY [None]
  - WEIGHT DECREASED [None]
